FAERS Safety Report 5706431-1 (Version None)
Quarter: 2008Q2

REPORT INFORMATION
  Report Type: 
  Country: None (occurrence: None)
  Receive Date: 20080411
  Receipt Date: 20080331
  Transmission Date: 20081010
  Serious: Yes (Hospitalization)
  Sender: FDA-Public Use
  Company Number: DSM-2008-00329

PATIENT
  Age: 66 Year
  Sex: Male

DRUGS (2)
  1. OLMESARTAN MEDOXOMIL [Suspect]
     Indication: HYPERTENSION
     Dosage: ORAL
     Route: 048
  2. CHIBROPROSCAR (FINASTERIDE) (FINASTERIDE) [Concomitant]

REACTIONS (3)
  - HYPERKERATOSIS PALMARIS AND PLANTARIS [None]
  - LYMPHADENOPATHY [None]
  - MYCOSIS FUNGOIDES [None]
